FAERS Safety Report 11601482 (Version 2)
Quarter: 2016Q2

REPORT INFORMATION
  Report Type: Spontaneous
  Country: US (occurrence: US)
  Receive Date: 20151006
  Receipt Date: 20160608
  Transmission Date: 20160815
  Serious: Yes (Other)
  Sender: FDA-Public Use
  Company Number: US-AMGEN-USASP2015027004

PATIENT
  Age: 76 Year
  Sex: Female

DRUGS (1)
  1. PROLIA [Suspect]
     Active Substance: DENOSUMAB
     Indication: OSTEOPOROSIS POSTMENOPAUSAL
     Dosage: UNK
     Route: 065
     Dates: start: 201412

REACTIONS (8)
  - Back disorder [Not Recovered/Not Resolved]
  - Insomnia [Unknown]
  - Back pain [Unknown]
  - Pain in extremity [Not Recovered/Not Resolved]
  - Mobility decreased [Not Recovered/Not Resolved]
  - Drug dose omission [Not Recovered/Not Resolved]
  - Groin pain [Not Recovered/Not Resolved]
  - Abasia [Unknown]

NARRATIVE: CASE EVENT DATE: 201501
